FAERS Safety Report 20618948 (Version 3)
Quarter: 2022Q2

REPORT INFORMATION
  Report Type: Report from Study
  Country: ES (occurrence: None)
  Receive Date: 20220322
  Receipt Date: 20220418
  Transmission Date: 20220721
  Serious: Yes (Hospitalization)
  Sender: FDA-Public Use
  Company Number: ES-ROCHE-3052142

PATIENT
  Age: 76 Year
  Sex: Female
  Weight: 44.8 kg

DRUGS (20)
  1. TIRAGOLUMAB [Suspect]
     Active Substance: TIRAGOLUMAB
     Indication: Metastatic neoplasm
     Dosage: START DATE OF MOST RECENT DOSE OF STUDY DRUG PRIOR TO AE: 31-JAN-2022 3:20 PM-3:50 PM. (600 MG)
     Route: 042
     Dates: start: 20210614
  2. ATEZOLIZUMAB [Suspect]
     Active Substance: ATEZOLIZUMAB
     Indication: Metastatic neoplasm
     Dosage: START DATE OF MOST RECENT DOSE OF STUDY DRUG?PRIOR TO AE 31-JAN-2022 3:20 PM- 3:50 PM. (1680 MG)
     Route: 041
     Dates: start: 20210614
  3. BUDESONIDE [Concomitant]
     Active Substance: BUDESONIDE
     Indication: Respiratory failure
     Route: 045
     Dates: start: 20200501
  4. FORMOTEROL FUMARATE [Concomitant]
     Active Substance: FORMOTEROL FUMARATE
     Indication: Respiratory failure
     Route: 045
     Dates: start: 20200501
  5. MEGESTROL ACETATE [Concomitant]
     Active Substance: MEGESTROL ACETATE
     Indication: Decreased appetite
     Route: 048
     Dates: start: 20200501
  6. LANSOPRAZOLE [Concomitant]
     Active Substance: LANSOPRAZOLE
     Route: 048
     Dates: start: 20201201
  7. TRAMADOL [Concomitant]
     Active Substance: TRAMADOL
     Indication: Pain
     Route: 048
     Dates: start: 20210101
  8. ACETAMINOPHEN [Concomitant]
     Active Substance: ACETAMINOPHEN
     Indication: Pain
     Route: 048
     Dates: start: 20210101
  9. ACETAMINOPHEN [Concomitant]
     Active Substance: ACETAMINOPHEN
     Indication: Tumour pain
     Route: 042
     Dates: start: 20220204, end: 20220217
  10. ACETAMINOPHEN [Concomitant]
     Active Substance: ACETAMINOPHEN
     Route: 042
     Dates: start: 20220204, end: 20220217
  11. DEXAMETHASONE [Concomitant]
     Active Substance: DEXAMETHASONE
     Route: 042
     Dates: start: 20220204, end: 20220213
  12. DEXAMETHASONE [Concomitant]
     Active Substance: DEXAMETHASONE
     Route: 048
     Dates: start: 20220214, end: 20220220
  13. BEMIPARIN [Concomitant]
     Active Substance: BEMIPARIN
     Route: 058
     Dates: start: 20220206, end: 20220219
  14. CEFOTAXIME [Concomitant]
     Active Substance: CEFOTAXIME SODIUM
     Indication: Pneumonia
     Route: 042
     Dates: start: 20220208, end: 20220215
  15. ESOMEPRAZOLE [Concomitant]
     Active Substance: ESOMEPRAZOLE
     Route: 048
     Dates: start: 20220208, end: 20220220
  16. ALBUTEROL [Concomitant]
     Active Substance: ALBUTEROL
     Dates: start: 20220208, end: 20220215
  17. IPRATROPIUM BROMIDE [Concomitant]
     Active Substance: IPRATROPIUM BROMIDE
     Dates: start: 20220208, end: 20220214
  18. AMOXICILLIN [Concomitant]
     Active Substance: AMOXICILLIN
     Indication: Pneumonia
     Route: 048
     Dates: start: 20220215, end: 20220217
  19. SODIUM CHLORIDE [Concomitant]
     Active Substance: SODIUM CHLORIDE
     Route: 042
     Dates: start: 20220217, end: 20220217
  20. FUROSEMIDE [Concomitant]
     Active Substance: FUROSEMIDE
     Route: 048
     Dates: start: 20220218, end: 20220220

REACTIONS (1)
  - Upper gastrointestinal haemorrhage [Recovering/Resolving]

NARRATIVE: CASE EVENT DATE: 20220312
